FAERS Safety Report 4366413-1 (Version None)
Quarter: 2004Q2

REPORT INFORMATION
  Report Type: 
  Country: None (occurrence: None)
  Receive Date: 20040527
  Receipt Date: 20040310
  Transmission Date: 20050107
  Serious: No
  Sender: FDA-Public Use
  Company Number: US-BRISTOL-MYERS SQUIBB COMPANY-12531000

PATIENT
  Age: 62 Year
  Sex: Male
  Weight: 44 kg

DRUGS (6)
  1. ERBITUX [Suspect]
     Indication: COLON CANCER
     Dosage: INITIAL DOSE OF 900 MG ON 03-MAR-2004
     Route: 042
     Dates: start: 20040310, end: 20040310
  2. DIPHENHYDRAMINE HCL [Concomitant]
     Indication: PREMEDICATION
     Route: 042
  3. CAMPTOSAR [Concomitant]
  4. NEULASTA [Concomitant]
  5. ARANESP [Concomitant]
  6. FERROUS GLUCONATE [Concomitant]

REACTIONS (1)
  - ACNE [None]
